FAERS Safety Report 9205802 (Version 2)
Quarter: 2013Q2

REPORT INFORMATION
  Report Type: Spontaneous
  Country: US (occurrence: US)
  Receive Date: 20130403
  Receipt Date: 20130416
  Transmission Date: 20140414
  Serious: No
  Sender: FDA-Public Use
  Company Number: US-009507513-1303USA014378

PATIENT
  Age: 46 Year
  Sex: Female

DRUGS (3)
  1. AZASITE [Suspect]
     Indication: DRY EYE
     Dosage: 1 GTT, BID IN EACH EYE
     Route: 047
     Dates: start: 20130324, end: 20130326
  2. AZASITE [Suspect]
     Indication: GLAUCOMA
  3. LISINOPRIL [Concomitant]
     Dosage: UNK

REACTIONS (3)
  - Ocular hyperaemia [Recovering/Resolving]
  - Glossodynia [Recovering/Resolving]
  - Swelling face [Recovering/Resolving]
